FAERS Safety Report 18332977 (Version 2)
Quarter: 2020Q4

REPORT INFORMATION
  Report Type: Spontaneous
  Country: JP (occurrence: JP)
  Receive Date: 20200930
  Receipt Date: 20201014
  Transmission Date: 20210113
  Serious: Yes (Other)
  Sender: FDA-Public Use
  Company Number: JP-ROCHE-2687141

PATIENT
  Age: 69 Year
  Sex: Male

DRUGS (4)
  1. TECENTRIQ [Suspect]
     Active Substance: ATEZOLIZUMAB
     Indication: LUNG ADENOCARCINOMA
     Dosage: THREE COURSES?DATE OF MOST RECENT DOSE RECEIVED PRIOR TO EVENT ONSET: 24/MAR/2020
     Route: 041
     Dates: start: 20200116
  2. AVASTIN [Suspect]
     Active Substance: BEVACIZUMAB
     Indication: LUNG ADENOCARCINOMA
     Dosage: DATE OF MOST RECENT DOSE RECEIVED PRIOR TO EVENT ONSET: 24/MAR/2020
     Route: 041
     Dates: start: 20200116
  3. CARBOPLATIN. [Concomitant]
     Active Substance: CARBOPLATIN
     Indication: LUNG ADENOCARCINOMA
     Dosage: UNCERTAIN DOSAGE AND THREE COURSES
     Route: 041
     Dates: start: 20200116, end: 20200324
  4. PACLITAXEL. [Concomitant]
     Active Substance: PACLITAXEL
     Indication: LUNG ADENOCARCINOMA
     Dosage: UNCERTAIN DOSAGE AND THREE COURSES
     Route: 041
     Dates: start: 20200116, end: 20200324

REACTIONS (2)
  - Hypophysitis [Not Recovered/Not Resolved]
  - Diabetes insipidus [Not Recovered/Not Resolved]

NARRATIVE: CASE EVENT DATE: 202006
